FAERS Safety Report 19233420 (Version 1)
Quarter: 2021Q2

REPORT INFORMATION
  Report Type: Spontaneous
  Country: QA (occurrence: QA)
  Receive Date: 20210507
  Receipt Date: 20210507
  Transmission Date: 20210717
  Serious: Yes (Life-Threatening, Hospitalization, Other)
  Sender: FDA-Public Use
  Company Number: QA-GE HEALTHCARE LIFE SCIENCES-2021CSU002182

PATIENT

DRUGS (3)
  1. OMNIPAQUE [Suspect]
     Active Substance: IOHEXOL
     Indication: CATHETERISATION CARDIAC
     Dosage: 50 ML, SINGLE
     Route: 042
  2. OMNIPAQUE [Suspect]
     Active Substance: IOHEXOL
     Indication: STENT PLACEMENT
  3. OMNIPAQUE [Suspect]
     Active Substance: IOHEXOL
     Indication: CARDIOGENIC SHOCK

REACTIONS (5)
  - X-ray gastrointestinal tract abnormal [Recovered/Resolved]
  - Acute kidney injury [Unknown]
  - Cardiac arrest [Unknown]
  - Necrotising enterocolitis neonatal [Unknown]
  - Low cardiac output syndrome [Unknown]
